FAERS Safety Report 4450700-2 (Version None)
Quarter: 2004Q3

REPORT INFORMATION
  Report Type: 
  Country: None (occurrence: None)
  Receive Date: 20040914
  Receipt Date: 20040914
  Transmission Date: 20050211
  Serious: Yes (Other)
  Sender: FDA-Public Use
  Company Number: None

PATIENT
  Age: 48 Year
  Sex: Male
  Weight: 95.5 kg

DRUGS (15)
  1. ALBUTEROL [Suspect]
     Indication: EMPHYSEMA
     Dosage: INHALE 2 PUFFS Q 4 H PRN
     Route: 055
     Dates: start: 20040101, end: 20040201
  2. IPRATROPIUM BROMIDE [Suspect]
     Indication: EMPHYSEMA
     Dosage: INHALE 3 PUFFS QID
     Route: 055
     Dates: start: 20040101, end: 20040201
  3. ASPIRIN [Concomitant]
  4. ATENOLOL [Concomitant]
  5. BACLOFEN [Concomitant]
  6. GEMFIBROZIL [Concomitant]
  7. METHADONE HCL [Concomitant]
  8. QUININE [Concomitant]
  9. NAPROXEN [Concomitant]
  10. SERTRALINE HCL [Concomitant]
  11. DIVALPROEX SODIUM [Concomitant]
  12. GABAPENTIN [Concomitant]
  13. OMEPRAZOLE [Concomitant]
  14. ALLOPURINOL [Concomitant]
  15. NIFEDIPINE [Concomitant]

REACTIONS (6)
  - BURNING SENSATION [None]
  - LIP ULCERATION [None]
  - MARKEDLY REDUCED DIETARY INTAKE [None]
  - MUCOSAL ULCERATION [None]
  - ORAL DISCOMFORT [None]
  - SKIN DESQUAMATION [None]
